FAERS Safety Report 23996682 (Version 1)
Quarter: 2024Q2

REPORT INFORMATION
  Report Type: Spontaneous
  Country: US (occurrence: US)
  Receive Date: 20240620
  Receipt Date: 20240620
  Transmission Date: 20240716
  Serious: No
  Sender: FDA-Public Use
  Company Number: USA--2024-US-000365

PATIENT
  Age: 78 Year
  Sex: Male

DRUGS (4)
  1. PILOCARPINE HYDROCHLORIDE [Suspect]
     Active Substance: PILOCARPINE HYDROCHLORIDE
     Dosage: USED IN LEFT EYE 3 TIMES A DAY
     Dates: start: 20240509
  2. ALPHAGAN P [Concomitant]
     Active Substance: BRIMONIDINE TARTRATE
  3. DORZOLAMIDE [Concomitant]
     Active Substance: DORZOLAMIDE
  4. LATANOPROST [Concomitant]
     Active Substance: LATANOPROST

REACTIONS (3)
  - Eye pain [Recovered/Resolved]
  - Pain in jaw [Recovered/Resolved]
  - Photophobia [Recovered/Resolved]

NARRATIVE: CASE EVENT DATE: 20240509
